FAERS Safety Report 5502822-2 (Version None)
Quarter: 2007Q4

REPORT INFORMATION
  Report Type: 
  Country: None (occurrence: None)
  Receive Date: 20071029
  Receipt Date: 20071012
  Transmission Date: 20080405
  Serious: Yes (Hospitalization)
  Sender: FDA-Public Use
  Company Number: 2007US001663

PATIENT
  Age: 62 Year
  Sex: Female
  Weight: 129.3 kg

DRUGS (1)
  1. AMEVIVE [Suspect]
     Indication: PSORIASIS
     Dosage: 15 MG, WEEKLY, INTRAMUSCULAR
     Route: 030
     Dates: start: 20030825, end: 20031203

REACTIONS (10)
  - BLOOD GLUCOSE INCREASED [None]
  - CELLULITIS [None]
  - INFECTED SKIN ULCER [None]
  - INSOMNIA [None]
  - LEUKOCYTOCLASTIC VASCULITIS [None]
  - OEDEMA PERIPHERAL [None]
  - PAIN [None]
  - PCO2 INCREASED [None]
  - RASH [None]
  - VENOUS STASIS [None]
